FAERS Safety Report 5294013-8 (Version None)
Quarter: 2007Q2

REPORT INFORMATION
  Report Type: 
  Country: None (occurrence: None)
  Receive Date: 20070405
  Receipt Date: 20070327
  Transmission Date: 20071010
  Serious: Yes (Hospitalization)
  Sender: FDA-Public Use
  Company Number: 232379K07USA

PATIENT
  Age: 45 Year
  Sex: Female

DRUGS (2)
  1. REBIF [Suspect]
     Indication: MULTIPLE SCLEROSIS
     Dosage: 22 MCG, 3 IN 1 WEEKS, SUBCUTANEOUS
     Route: 058
  2. LEXAPRO [Concomitant]

REACTIONS (6)
  - DEATH OF RELATIVE [None]
  - ECONOMIC PROBLEM [None]
  - FATIGUE [None]
  - STOMACH DISCOMFORT [None]
  - SUICIDE ATTEMPT [None]
  - TREATMENT NONCOMPLIANCE [None]
